APPROVED DRUG PRODUCT: TIBSOVO
Active Ingredient: IVOSIDENIB
Strength: 250MG
Dosage Form/Route: TABLET;ORAL
Application: N211192 | Product #001
Applicant: SERVIER PHARMACEUTICALS LLC
Approved: Jul 20, 2018 | RLD: Yes | RS: Yes | Type: RX

PATENTS:
Patent 9850277 | Expires: Jan 18, 2033
Patent 9850277 | Expires: Jan 18, 2033
Patent 9474779 | Expires: Aug 19, 2033
Patent 9474779 | Expires: Aug 19, 2033
Patent 9850277 | Expires: Jan 18, 2033
Patent 9968595 | Expires: Mar 13, 2035
Patent 9968595 | Expires: Mar 13, 2035
Patent 9968595 | Expires: Mar 13, 2035
Patent 9474779 | Expires: Aug 19, 2033
Patent 10980788 | Expires: Jun 7, 2039
Patent 9474779 | Expires: Aug 19, 2033
Patent 9850277 | Expires: Jan 18, 2033
Patent 10980788 | Expires: Jun 7, 2039
Patent 10610125 | Expires: Jun 21, 2030
Patent 10610125 | Expires: Jun 21, 2030
Patent 10717764 | Expires: Jan 18, 2033
Patent 11667673 | Expires: Jan 18, 2033
Patent 10799490 | Expires: Mar 13, 2035
Patent 10610125 | Expires: Jun 21, 2030
Patent 9850277 | Expires: Jan 18, 2033
Patent 9968595 | Expires: Mar 13, 2035
Patent 9474779 | Expires: Aug 19, 2033
Patent 9474779 | Expires: Aug 19, 2033
Patent 9850277 | Expires: Jan 18, 2033
Patent 10799490 | Expires: Mar 13, 2035
Patent 10799490 | Expires: Mar 13, 2035
Patent 10980788 | Expires: Jun 7, 2039
Patent 10653710 | Expires: Oct 18, 2036
Patent 10980788 | Expires: Jun 7, 2039
Patent 10980788 | Expires: Jun 7, 2039
Patent 10449184 | Expires: Mar 13, 2035

EXCLUSIVITY:
Code: I-924 | Date: Oct 24, 2026
Code: ODE-242 | Date: May 2, 2026
Code: ODE-368 | Date: Aug 25, 2028
Code: ODE-447 | Date: Oct 24, 2030